FAERS Safety Report 14334720 (Version 2)
Quarter: 2018Q1

REPORT INFORMATION
  Report Type: Spontaneous
  Country: FR (occurrence: FR)
  Receive Date: 20171228
  Receipt Date: 20180329
  Transmission Date: 20180509
  Serious: Yes (Hospitalization, Other)
  Sender: FDA-Public Use
  Company Number: FR-MYLANLABS-2017M1082736

PATIENT
  Sex: Female

DRUGS (25)
  1. DEXAMETHASONE. [Suspect]
     Active Substance: DEXAMETHASONE
     Indication: ACUTE LYMPHOCYTIC LEUKAEMIA
     Dosage: 22.5 MG, UNK
     Route: 065
     Dates: start: 20170727, end: 20170926
  2. 6-MERCAPTOPURINE MONOHYDRATE [Suspect]
     Active Substance: MERCAPTOPURINE
     Dosage: 735 MG, 1X/DAY:QD
     Route: 048
     Dates: start: 20170727, end: 20170816
  3. VINCRISTINE [Suspect]
     Active Substance: VINCRISTINE
     Indication: ACUTE LYMPHOCYTIC LEUKAEMIA
     Dosage: 1 MG, 1X/DAY:QD (D1, D36,D57)
     Route: 065
     Dates: start: 20170727, end: 20170921
  4. VINCRISTINE [Suspect]
     Active Substance: VINCRISTINE
     Dosage: 1 MG, 1X/DAY:QD (D1, D36,D57)
     Route: 042
     Dates: start: 20170727
  5. DEXAMETHASONE. [Suspect]
     Active Substance: DEXAMETHASONE
     Dosage: 20 MG, QD
     Route: 065
     Dates: start: 20170824
  6. CEFTAZIDIME. [Concomitant]
     Active Substance: CEFTAZIDIME
     Indication: HYPERBILIRUBINAEMIA
  7. BACTRIM [Concomitant]
     Active Substance: SULFAMETHOXAZOLE\TRIMETHOPRIM
     Indication: HYPERBILIRUBINAEMIA
  8. METHOTREXATE. [Suspect]
     Active Substance: METHOTREXATE
     Indication: ACUTE LYMPHOCYTIC LEUKAEMIA
     Dosage: 17.5 MG, QW
     Route: 048
  9. METHOTREXATE. [Suspect]
     Active Substance: METHOTREXATE
     Dosage: 12 MG, QD
     Route: 037
     Dates: start: 20170728
  10. DEXAMETHASONE. [Suspect]
     Active Substance: DEXAMETHASONE
     Dosage: 22.5 MG, 1X/DAY:QD
     Route: 065
     Dates: start: 20170727
  11. 6-MERCAPTOPURINE MONOHYDRATE [Suspect]
     Active Substance: MERCAPTOPURINE
     Dosage: 714 MG, 1X/DAY:QD
     Route: 048
     Dates: start: 20170824
  12. VINCRISTINE [Suspect]
     Active Substance: VINCRISTINE
     Dosage: (D8, D29,D64)1.1 MG, 1X/DAY:QD
     Route: 065
     Dates: start: 20170803
  13. VINCRISTINE [Suspect]
     Active Substance: VINCRISTINE
     Route: 042
  14. DEXAMETHASONE. [Suspect]
     Active Substance: DEXAMETHASONE
     Dosage: 22.5 MG, 1X/DAY:QD
     Route: 048
     Dates: start: 20170921
  15. 6-MERCAPTOPURINE MONOHYDRATE [Suspect]
     Active Substance: MERCAPTOPURINE
     Indication: ACUTE LYMPHOCYTIC LEUKAEMIA
     Dosage: 735 MG, 1X/DAY:QD
     Route: 048
     Dates: start: 20170727, end: 20170816
  16. ONCASPAR [Suspect]
     Active Substance: PEGASPARGASE
     Indication: ACUTE LYMPHOCYTIC LEUKAEMIA
     Dosage: 900 IU, (D8,D36, D64)
     Route: 042
     Dates: start: 20170803, end: 20170928
  17. METHOTREXATE. [Suspect]
     Active Substance: METHOTREXATE
     Dosage: 17.5 MG, QD
     Route: 048
     Dates: start: 20170803
  18. PEGASPARGASE [Suspect]
     Active Substance: PEGASPARGASE
     Indication: ACUTE LYMPHOCYTIC LEUKAEMIA
     Dosage: 900 IU, (D8,D36, D64)
     Route: 042
     Dates: start: 20170803
  19. ADRIGYL [Concomitant]
     Indication: HYPERBILIRUBINAEMIA
  20. DEXAMETHASONE. [Suspect]
     Active Substance: DEXAMETHASONE
     Dosage: 20 MG, 1X/DAY:QD
  21. DOLIPRANE [Concomitant]
     Active Substance: ACETAMINOPHEN
     Indication: HYPERBILIRUBINAEMIA
  22. DECTANCYL [Concomitant]
     Active Substance: DEXAMETHASONE
     Indication: HYPERBILIRUBINAEMIA
  23. VANCOMYCIN [Concomitant]
     Active Substance: VANCOMYCIN
     Indication: HYPERBILIRUBINAEMIA
  24. FUNGIZONE [Concomitant]
     Active Substance: AMPHOTERICIN B
     Indication: HYPERBILIRUBINAEMIA
  25. INEXIUM [Concomitant]
     Active Substance: ESOMEPRAZOLE
     Indication: HYPERBILIRUBINAEMIA

REACTIONS (2)
  - Hyperbilirubinaemia [Recovered/Resolved]
  - Febrile bone marrow aplasia [Recovered/Resolved]

NARRATIVE: CASE EVENT DATE: 20170921
